FAERS Safety Report 13230459 (Version 6)
Quarter: 2019Q3

REPORT INFORMATION
  Report Type: Report from Study
  Country: DE (occurrence: DE)
  Receive Date: 20170214
  Receipt Date: 20190813
  Transmission Date: 20191004
  Serious: Yes (Other)
  Sender: FDA-Public Use
  Company Number: PHHY2016DE061294

PATIENT
  Age: 41 Year
  Sex: Female

DRUGS (3)
  1. GILENYA [Suspect]
     Active Substance: FINGOLIMOD HYDROCHLORIDE
     Indication: MULTIPLE SCLEROSIS
     Dosage: UNK, QD
     Route: 048
     Dates: start: 20131028
  2. GILENYA [Suspect]
     Active Substance: FINGOLIMOD HYDROCHLORIDE
     Dosage: UNK, QD
     Route: 048
     Dates: start: 20170110, end: 20170511
  3. GILENYA [Suspect]
     Active Substance: FINGOLIMOD HYDROCHLORIDE
     Dosage: UNK
     Route: 048
     Dates: start: 20170512

REACTIONS (13)
  - Hypothyroidism [Unknown]
  - Contusion [Unknown]
  - Carpal tunnel syndrome [Unknown]
  - Headache [Unknown]
  - Nasopharyngitis [Unknown]
  - Neurogenic bladder [Unknown]
  - Pain in extremity [Not Recovered/Not Resolved]
  - Weight increased [Recovered/Resolved]
  - Respiratory tract infection [Recovered/Resolved]
  - Patella fracture [Recovered/Resolved]
  - Spinal pain [Unknown]
  - Back pain [Unknown]
  - Gastritis [Recovered/Resolved]

NARRATIVE: CASE EVENT DATE: 20150911
